FAERS Safety Report 5835614-5 (Version None)
Quarter: 2008Q3

REPORT INFORMATION
  Report Type: 
  Country: None (occurrence: None)
  Receive Date: 20080806
  Receipt Date: 20080801
  Transmission Date: 20090109
  Serious: Yes (Death, Hospitalization)
  Sender: FDA-Public Use
  Company Number: PHHO2003US02465

PATIENT
  Sex: Male
  Weight: 117.9 kg

DRUGS (3)
  1. AZATHIOPRINE COMP-AZA+ [Suspect]
     Indication: LUNG TRANSPLANT
     Dosage: 1-3 MG/KG
     Route: 048
     Dates: start: 20001114, end: 20030217
  2. NEORAL [Suspect]
     Indication: LUNG TRANSPLANT
     Dosage: NOT REPORTED
     Route: 048
     Dates: end: 20030324
  3. ATENOLOL [Suspect]

REACTIONS (23)
  - ASTHENIA [None]
  - ATRIAL FIBRILLATION [None]
  - BACTERIA SPUTUM IDENTIFIED [None]
  - BLOOD CREATININE INCREASED [None]
  - CELLULITIS [None]
  - CHEST DISCOMFORT [None]
  - CHILLS [None]
  - COUGH [None]
  - DISEASE PROGRESSION [None]
  - DYSPNOEA [None]
  - FATIGUE [None]
  - HYPOXIA [None]
  - INCISIONAL DRAINAGE [None]
  - LUNG INFILTRATION [None]
  - MYOCARDIAL INFARCTION [None]
  - NEPHRITIS INTERSTITIAL [None]
  - NEPHROPATHY TOXIC [None]
  - OEDEMA PERIPHERAL [None]
  - PNEUMONIA [None]
  - POSTOPERATIVE WOUND COMPLICATION [None]
  - PRODUCTIVE COUGH [None]
  - PYREXIA [None]
  - RENAL FAILURE ACUTE [None]
